FAERS Safety Report 19139275 (Version 33)
Quarter: 2022Q4

REPORT INFORMATION
  Report Type: Spontaneous
  Country: FR (occurrence: FR)
  Receive Date: 20210415
  Receipt Date: 20221201
  Transmission Date: 20230113
  Serious: Yes (Other)
  Sender: FDA-Public Use
  Company Number: FR-PFIZER INC-2021309822

PATIENT
  Age: 81 Year
  Sex: Female

DRUGS (1)
  1. PALBOCICLIB [Suspect]
     Active Substance: PALBOCICLIB
     Indication: Breast cancer metastatic
     Dosage: UNK

REACTIONS (29)
  - Thrombocytopenia [Unknown]
  - Neutropenia [Unknown]
  - Haemorrhage [Not Recovered/Not Resolved]
  - Mucosal inflammation [Recovering/Resolving]
  - Cough [Not Recovered/Not Resolved]
  - Rash [Recovered/Resolved]
  - Dyspnoea exertional [Not Recovered/Not Resolved]
  - Fatigue [Not Recovered/Not Resolved]
  - Vision blurred [Not Recovered/Not Resolved]
  - Neck pain [Unknown]
  - Headache [Unknown]
  - Dizziness [Recovered/Resolved]
  - Palmar-plantar erythrodysaesthesia syndrome [Recovered/Resolved]
  - Rash maculo-papular [Recovering/Resolving]
  - Back pain [Unknown]
  - Palpitations [Recovered/Resolved]
  - Constipation [Recovering/Resolving]
  - Stomatitis [Recovering/Resolving]
  - Dry skin [Unknown]
  - Oedema peripheral [Recovering/Resolving]
  - Lymphadenopathy [Not Recovered/Not Resolved]
  - Breast pain [Recovered/Resolved]
  - Oral discomfort [Unknown]
  - Pruritus [Unknown]
  - Breast discharge [Unknown]
  - Gastrooesophageal reflux disease [Recovered/Resolved]
  - Nausea [Recovered/Resolved]
  - Decreased appetite [Unknown]
  - Pain in extremity [Unknown]

NARRATIVE: CASE EVENT DATE: 20210501
